FAERS Safety Report 4464988-5 (Version None)
Quarter: 2004Q4

REPORT INFORMATION
  Report Type: 
  Country: None (occurrence: None)
  Receive Date: 20041004
  Receipt Date: 20040518
  Transmission Date: 20050328
  Serious: No
  Sender: FDA-Public Use
  Company Number: 370260

PATIENT
  Age: 80 Year
  Sex: Female

DRUGS (2)
  1. COREG [Suspect]
     Indication: DRUG USE FOR UNKNOWN INDICATION
  2. CORDARONE [Concomitant]

REACTIONS (2)
  - ASTHENIA [None]
  - MYALGIA [None]
